FAERS Safety Report 4557914-1 (Version None)
Quarter: 2005Q1

REPORT INFORMATION
  Report Type: 
  Country: None (occurrence: None)
  Receive Date: 20050121
  Receipt Date: 20040115
  Transmission Date: 20050727
  Serious: No
  Sender: FDA-Public Use
  Company Number: US-BRISTOL-MYERS SQUIBB COMPANY-12485660

PATIENT
  Sex: Female

DRUGS (1)
  1. SERZONE [Suspect]
     Route: 048
     Dates: start: 20000801, end: 20020101

REACTIONS (6)
  - ABDOMINAL PAIN [None]
  - ANOREXIA [None]
  - CHROMATURIA [None]
  - FATIGUE [None]
  - MALAISE [None]
  - NAUSEA [None]
